FAERS Safety Report 5368158-8 (Version None)
Quarter: 2007Q2

REPORT INFORMATION
  Report Type: 
  Country: None (occurrence: None)
  Receive Date: 20070625
  Receipt Date: 20070615
  Transmission Date: 20071010
  Serious: Yes (Other)
  Sender: FDA-Public Use
  Company Number: PHBS2007BR10325

PATIENT
  Age: 53 Year
  Sex: Female

DRUGS (5)
  1. CARBAMAZEPINE [Suspect]
     Indication: CONVULSION
     Dosage: 100 MG, QD
     Route: 048
  2. PHENYTOIN [Suspect]
     Indication: CONVULSION
     Dosage: 200 MG
     Route: 065
  3. PURAN T4 [Concomitant]
     Indication: HYPOTHYROIDISM
  4. ATENOLOL [Concomitant]
     Indication: HYPERTENSION
  5. HYDROCHLOROTHIAZIDE [Concomitant]

REACTIONS (7)
  - CONVULSION [None]
  - DEPRESSION [None]
  - HYPOTHYROIDISM [None]
  - MUSCULOSKELETAL PAIN [None]
  - OSTEOARTHRITIS [None]
  - RHEUMATIC FEVER [None]
  - WEIGHT DECREASED [None]
